FAERS Safety Report 5873336-5 (Version None)
Quarter: 2008Q3

REPORT INFORMATION
  Report Type: 
  Country: None (occurrence: None)
  Receive Date: 20080829
  Receipt Date: 20071105
  Transmission Date: 20090109
  Serious: Yes (Death, Hospitalization)
  Sender: FDA-Public Use
  Company Number: 2007-01065FE

PATIENT
  Age: 30 Year
  Sex: Male

DRUGS (3)
  1. LHRH (LUTEINIZING HORMONE-RELEASING HORMONE) [Suspect]
     Indication: DIAGNOSTIC PROCEDURE
     Dosage: 100 MCG ONCE, IV
     Route: 042
  2. TRH (TRH) (PROTIRELIN) [Suspect]
     Indication: DIAGNOSTIC PROCEDURE
     Dosage: 250 MCG ONCE
     Route: 042
  3. GLUCAGON [Suspect]
     Indication: DIAGNOSTIC PROCEDURE
     Dosage: 2 MG ONCE
     Route: 042

REACTIONS (1)
  - PITUITARY HAEMORRHAGE [None]
